FAERS Safety Report 25759463 (Version 1)
Quarter: 2025Q3

REPORT INFORMATION
  Report Type: Report from Study
  Country: US (occurrence: US)
  Receive Date: 20250904
  Receipt Date: 20250904
  Transmission Date: 20251021
  Serious: Yes (Other)
  Sender: JOHNSON AND JOHNSON
  Company Number: US-JNJFOC-20250836226

PATIENT
  Age: 62 Year
  Sex: Female

DRUGS (3)
  1. TREMFYA [Suspect]
     Active Substance: GUSELKUMAB
     Indication: Psoriasis
     Route: 058
     Dates: start: 20250822
  2. RIFAMPIN [Suspect]
     Active Substance: RIFAMPIN
     Indication: Tuberculin test positive
     Route: 065
     Dates: start: 20250808
  3. ISONIAZID [Suspect]
     Active Substance: ISONIAZID
     Indication: Tuberculin test positive
     Route: 065
     Dates: start: 202508

REACTIONS (3)
  - Hypertension [Recovering/Resolving]
  - Hypersensitivity [Recovered/Resolved]
  - Tremor [Unknown]

NARRATIVE: CASE EVENT DATE: 20250801
